FAERS Safety Report 15593541 (Version 1)
Quarter: 2018Q4

REPORT INFORMATION
  Report Type: Spontaneous
  Country: IT (occurrence: IT)
  Receive Date: 20181106
  Receipt Date: 20181106
  Transmission Date: 20190205
  Serious: Yes (Disabling)
  Sender: FDA-Public Use
  Company Number: IT-MYLANLABS-2018M1082687

PATIENT
  Sex: Female

DRUGS (1)
  1. MYLAN LEVOFLOXACIN 500 MG [Suspect]
     Active Substance: LEVOFLOXACIN
     Indication: SURGERY
     Dosage: 1 TABLET DAILY
     Route: 048
     Dates: start: 20181025, end: 20181029

REACTIONS (3)
  - Pain in extremity [Not Recovered/Not Resolved]
  - Nausea [Unknown]
  - Abdominal discomfort [Unknown]

NARRATIVE: CASE EVENT DATE: 20181029
